FAERS Safety Report 12627029 (Version 1)
Quarter: 2016Q3

REPORT INFORMATION
  Report Type: Report from Study
  Country: US (occurrence: US)
  Receive Date: 20160805
  Receipt Date: 20160805
  Transmission Date: 20161109
  Serious: Yes (Hospitalization, Other)
  Sender: FDA-Public Use
  Company Number: US-BRISTOL-MYERS SQUIBB COMPANY-BMS-2016-046336

PATIENT
  Age: 69 Year
  Sex: Male
  Weight: 51.76 kg

DRUGS (4)
  1. NIVOLUMAB [Suspect]
     Active Substance: NIVOLUMAB
     Indication: SQUAMOUS CELL CARCINOMA
     Dosage: 240 MG, UNK
     Route: 042
     Dates: start: 20160421, end: 20160519
  2. INCB24360 [Suspect]
     Active Substance: EPACADOSTAT
     Indication: SQUAMOUS CELL CARCINOMA
     Dosage: 300 MG, BID
     Route: 048
     Dates: start: 20160421, end: 20160602
  3. NIVOLUMAB [Suspect]
     Active Substance: NIVOLUMAB
     Dosage: 240 MG, UNK
     Route: 042
     Dates: start: 20160519
  4. INCB24360 [Suspect]
     Active Substance: EPACADOSTAT
     Dosage: 300 MG, BID
     Route: 048
     Dates: start: 20160602

REACTIONS (8)
  - Intracranial mass [Recovering/Resolving]
  - Constipation [Unknown]
  - Cholelithiasis [Recovering/Resolving]
  - Hyperbilirubinaemia [Unknown]
  - Nausea [Unknown]
  - Seizure [Recovered/Resolved]
  - Hepatic enzyme increased [Unknown]
  - Herpes zoster [Recovered/Resolved]

NARRATIVE: CASE EVENT DATE: 20160602
